FAERS Safety Report 13568331 (Version 3)
Quarter: 2018Q3

REPORT INFORMATION
  Report Type: Report from Study
  Country: US (occurrence: US)
  Receive Date: 20170522
  Receipt Date: 20180803
  Transmission Date: 20181010
  Serious: Yes (Death, Life-Threatening, Hospitalization)
  Sender: FDA-Public Use
  Company Number: US-AEGERION PHARMACEUTICAL, INC-AEGR003170

PATIENT
  Age: 44 Year
  Sex: Female

DRUGS (18)
  1. METRELEPTIN [Suspect]
     Active Substance: METRELEPTIN
     Indication: CONGENITAL GENERALISED LIPODYSTROPHY
     Dosage: 2.7 MG, BID
     Route: 058
     Dates: start: 20030501, end: 20110502
  2. SEVELAMER CARBONATE. [Concomitant]
     Active Substance: SEVELAMER CARBONATE
     Indication: RENAL DISORDER
     Dosage: 1600 MG, TID
     Route: 048
     Dates: end: 20170201
  3. IRON [Concomitant]
     Active Substance: IRON
     Indication: PRODUCT USED FOR UNKNOWN INDICATION
  4. METHADONE [Concomitant]
     Active Substance: METHADONE HYDROCHLORIDE
     Indication: PRODUCT USED FOR UNKNOWN INDICATION
  5. METRELEPTIN [Suspect]
     Active Substance: METRELEPTIN
     Dosage: 5 MG, BID
     Dates: start: 20140930, end: 20161003
  6. DOCUSATE SODIUM. [Concomitant]
     Active Substance: DOCUSATE SODIUM
     Indication: PRODUCT USED FOR UNKNOWN INDICATION
  7. METRELEPTIN [Suspect]
     Active Substance: METRELEPTIN
     Dosage: 5 MG, BID
     Dates: start: 20110601, end: 20140901
  8. CALCITRIOL. [Concomitant]
     Active Substance: CALCITRIOL
     Indication: PRODUCT USED FOR UNKNOWN INDICATION
  9. HYDROMORPHONE [Concomitant]
     Active Substance: HYDROMORPHONE
     Indication: PRODUCT USED FOR UNKNOWN INDICATION
  10. MULTIVITAMIN [Concomitant]
     Active Substance: VITAMINS
     Indication: PRODUCT USED FOR UNKNOWN INDICATION
  11. CELLCEPT [Concomitant]
     Active Substance: MYCOPHENOLATE MOFETIL\MYCOPHENOLATE MOFETIL HYDROCHLORIDE
     Indication: PRODUCT USED FOR UNKNOWN INDICATION
  12. PREDNISONE. [Concomitant]
     Active Substance: PREDNISONE
     Indication: PRODUCT USED FOR UNKNOWN INDICATION
  13. HYDROCODONE BITARTRATE AND ACETAMINOPHEN [Concomitant]
     Active Substance: ACETAMINOPHEN\HYDROCODONE BITARTRATE
     Indication: PRODUCT USED FOR UNKNOWN INDICATION
  14. DOXAZOSIN [Concomitant]
     Active Substance: DOXAZOSIN\DOXAZOSIN MESYLATE
     Indication: PRODUCT USED FOR UNKNOWN INDICATION
  15. OCUVITE EXTRA [Concomitant]
     Indication: PRODUCT USED FOR UNKNOWN INDICATION
     Route: 048
  16. SENNA [Concomitant]
     Active Substance: SENNA LEAF\SENNOSIDES\SENNOSIDES A AND B
     Indication: PRODUCT USED FOR UNKNOWN INDICATION
  17. LABETALOL [Concomitant]
     Active Substance: LABETALOL\LABETALOL HYDROCHLORIDE
     Indication: PRODUCT USED FOR UNKNOWN INDICATION
  18. GLIPIZIDE. [Concomitant]
     Active Substance: GLIPIZIDE
     Indication: DIABETES MELLITUS
     Dosage: 5 MG, OD
     Route: 048
     Dates: start: 200303, end: 20170201

REACTIONS (3)
  - Therapy cessation [Not Recovered/Not Resolved]
  - Adenocarcinoma pancreas [Fatal]
  - Hepatic neoplasm [Not Recovered/Not Resolved]

NARRATIVE: CASE EVENT DATE: 201610
